FAERS Safety Report 5242277-9 (Version None)
Quarter: 2007Q1

REPORT INFORMATION
  Report Type: 
  Country: None (occurrence: None)
  Receive Date: 20070221
  Receipt Date: 20070216
  Transmission Date: 20070707
  Serious: Yes (Other)
  Sender: FDA-Public Use
  Company Number: GB-JNJFOC-20061105552

PATIENT
  Sex: Male

DRUGS (8)
  1. REMICADE [Suspect]
     Dosage: STOPPED IN FEBRUARY - MARCH (3RD INFUSION)
     Route: 042
  2. REMICADE [Suspect]
     Indication: CROHN'S DISEASE
     Route: 042
  3. AZATHIOPRINE [Concomitant]
     Route: 065
  4. AZATHIOPRINE [Concomitant]
     Route: 065
  5. AZATHIOPRINE [Concomitant]
     Dosage: 2.5 MG/KG
     Route: 065
  6. PREDNISOLONE [Concomitant]
  7. VIT B12 [Concomitant]
  8. METRONIDAZOLE [Concomitant]

REACTIONS (2)
  - DIABETIC KETOACIDOSIS [None]
  - T-CELL LYMPHOMA [None]
